FAERS Safety Report 8510422-5 (Version None)
Quarter: 2012Q3

REPORT INFORMATION
  Report Type: 
  Country: None (occurrence: None)
  Receive Date: 20120714
  Receipt Date: 20120710
  Transmission Date: 20120928
  Serious: Yes (Other)
  Sender: FDA-Public Use
  Company Number: PHHY2012US058180

PATIENT

DRUGS (4)
  1. TACROLIMUS [Suspect]
  2. SIROLIMUS [Suspect]
  3. PREDNISONE [Suspect]
  4. AZATHIOPRINE [Suspect]

REACTIONS (3)
  - FOETAL EXPOSURE DURING PREGNANCY [None]
  - PREMATURE BABY [None]
  - EYE DISORDER [None]
